FAERS Safety Report 5501443-5 (Version None)
Quarter: 2007Q4

REPORT INFORMATION
  Report Type: 
  Country: None (occurrence: None)
  Receive Date: 20071030
  Receipt Date: 20071023
  Transmission Date: 20080405
  Serious: Yes (Hospitalization, Other)
  Sender: FDA-Public Use
  Company Number: PHBS2007BR05037

PATIENT
  Age: 43 Year
  Sex: Female
  Weight: 93 kg

DRUGS (3)
  1. TRILEPTAL [Suspect]
     Indication: MOOD ALTERED
     Dosage: UNK, BID
     Route: 048
  2. TRILEPTAL [Suspect]
     Dosage: 150 MG, QID
     Route: 048
     Dates: start: 20000101, end: 20030101
  3. AMPLICTIL [Concomitant]
     Indication: MOOD ALTERED
     Dosage: 25 MG, BID
     Route: 048
     Dates: start: 20000101

REACTIONS (28)
  - ABDOMINAL PAIN UPPER [None]
  - ANXIETY [None]
  - BLOOD PRESSURE DECREASED [None]
  - COUGH [None]
  - DEPRESSED LEVEL OF CONSCIOUSNESS [None]
  - DEPRESSION [None]
  - DYSPNOEA [None]
  - EATING DISORDER [None]
  - EMOTIONAL DISORDER [None]
  - FATIGUE [None]
  - FEELING ABNORMAL [None]
  - HEADACHE [None]
  - HEPATIC PAIN [None]
  - HYPERSENSITIVITY [None]
  - HYPOKINESIA [None]
  - IMMUNODEFICIENCY [None]
  - INFLUENZA [None]
  - MALAISE [None]
  - PALLOR [None]
  - PRURITUS [None]
  - REFLUX GASTRITIS [None]
  - RHINITIS [None]
  - SEDATION [None]
  - SOMNOLENCE [None]
  - SUFFOCATION FEELING [None]
  - VAGINAL CANDIDIASIS [None]
  - VISUAL DISTURBANCE [None]
  - VOMITING [None]
